FAERS Safety Report 7148357-5 (Version None)
Quarter: 2010Q4

REPORT INFORMATION
  Report Type: 
  Country: None (occurrence: None)
  Receive Date: 20101124
  Receipt Date: 20101116
  Transmission Date: 20110411
  Serious: Yes (Other)
  Sender: FDA-Public Use
  Company Number: 2010SP060436

PATIENT
  Sex: Female

DRUGS (1)
  1. LINESSA (DESOGESTREL/ETHINYLESTRADIOL /00570801/) [Suspect]
     Indication: PRODUCT USED FOR UNKNOWN INDICATION

REACTIONS (8)
  - ANGER [None]
  - EMOTIONAL DISORDER [None]
  - INCREASED APPETITE [None]
  - IRRITABILITY [None]
  - PERSONALITY DISORDER [None]
  - PHOBIA [None]
  - SUICIDAL IDEATION [None]
  - WEIGHT INCREASED [None]
